FAERS Safety Report 12924610 (Version 1)
Quarter: 2016Q4

REPORT INFORMATION
  Report Type: Spontaneous
  Country: US (occurrence: US)
  Receive Date: 20161109
  Receipt Date: 20161109
  Transmission Date: 20170207
  Serious: No
  Sender: FDA-Public Use
  Company Number: US-JEROME STEVENS PHARMACEUTICALS, INC.-1059362

PATIENT
  Age: 48 Year
  Sex: Female

DRUGS (1)
  1. UNITHROID [Suspect]
     Active Substance: LEVOTHYROXINE SODIUM
     Route: 048

REACTIONS (6)
  - Feeling cold [None]
  - Dry skin [None]
  - Speech disorder [None]
  - Alopecia [None]
  - Somnolence [None]
  - Lethargy [None]
